FAERS Safety Report 6688307-9 (Version None)
Quarter: 2010Q2

REPORT INFORMATION
  Report Type: 
  Country: None (occurrence: None)
  Receive Date: 20100420
  Receipt Date: 20100408
  Transmission Date: 20101027
  Serious: Yes (Other)
  Sender: FDA-Public Use
  Company Number: MX-ROCHE-697131

PATIENT
  Sex: Female
  Weight: 55 kg

DRUGS (6)
  1. PEGINTERFERON ALFA-2A [Suspect]
     Indication: HEPATITIS C
     Route: 058
     Dates: start: 20090925, end: 20100107
  2. PEGINTERFERON ALFA-2A [Suspect]
     Dosage: DOSE: (1 APL/90)
     Route: 058
     Dates: start: 20100114, end: 20100221
  3. RIBAVIRIN [Suspect]
     Indication: HEPATITIS C
     Dosage: FREQUENCY: 5 TABLETS DAILY.
     Route: 048
     Dates: start: 20090925, end: 20100113
  4. RIBAVIRIN [Suspect]
     Dosage: FREQUENCY: 4 TABLETS PER DAY.
     Route: 048
     Dates: start: 20100114, end: 20100221
  5. OMEPRAZOLE [Concomitant]
     Indication: COLITIS
     Route: 048
     Dates: start: 20091001, end: 20091001
  6. ALEVIAN-DUO [Concomitant]
     Indication: COLITIS
     Route: 048
     Dates: start: 20091001, end: 20091001

REACTIONS (4)
  - DIZZINESS [None]
  - EAR PAIN [None]
  - OVERDOSE [None]
  - PLATELET COUNT DECREASED [None]
